FAERS Safety Report 21424491 (Version 2)
Quarter: 2022Q4

REPORT INFORMATION
  Report Type: Spontaneous
  Country: US (occurrence: US)
  Receive Date: 20221007
  Receipt Date: 20221102
  Transmission Date: 20230113
  Serious: Yes (Other)
  Sender: FDA-Public Use
  Company Number: US-BRISTOL-MYERS SQUIBB COMPANY-2022-116217

PATIENT
  Age: 83 Year
  Sex: Female
  Weight: 95.70 kg

DRUGS (25)
  1. REVLIMID [Suspect]
     Active Substance: LENALIDOMIDE
     Indication: Plasma cell myeloma
     Dosage: FREQ - ONCE DAILY * 21 DAYS THEN 7 DAYS OFF
     Route: 048
     Dates: start: 20220809
  2. REVLIMID [Suspect]
     Active Substance: LENALIDOMIDE
     Dosage: FREQ - TAKE 1 CAPSULE BY MOUTH DAILY FOR 21 DAYS, THEN 7 DAYS OFF.
     Route: 048
     Dates: start: 20221003
  3. REVLIMID [Suspect]
     Active Substance: LENALIDOMIDE
     Dosage: FREQ - TAKE ONE CAPSULE BY MOUTH ON DAYS 1 THROUGH 21 EVERY 28 DAYS.
     Route: 048
     Dates: start: 20220809
  4. REVLIMID [Suspect]
     Active Substance: LENALIDOMIDE
     Dosage: FREQ - TAKE 1 CAPSULE BY MOUTH DAILY FOR 21 DAYS , THEN 7 DAYS OFF.
     Route: 048
     Dates: start: 20220902
  5. ALBUTEROL [Concomitant]
     Active Substance: ALBUTEROL
     Indication: Product used for unknown indication
     Dosage: INHALE 2 PUFFS BY MOUTH EVERY 4 HOURS AS NEEDED FOR WHEEZING.
     Route: 048
     Dates: start: 20220817
  6. AZITHROMYCIN [Concomitant]
     Active Substance: AZITHROMYCIN
     Indication: Product used for unknown indication
     Dosage: FREQ - TAKE 2 TABLETS BY MOUTH ON DAY 1 THEN TAKE 1 TABLET BY MOUTH DAILY FOR 4 DAYS
     Route: 048
     Dates: start: 20220107
  7. BENZONATATE [Concomitant]
     Active Substance: BENZONATATE
     Indication: Product used for unknown indication
     Dosage: FREQ - TAKE ONE CAPSULE BY MOUTH THREE TIMES DAILY AS NEEDED.
     Route: 048
     Dates: start: 20220109
  8. DOXYCYCLINE [Concomitant]
     Active Substance: DOXYCYCLINE
     Indication: Product used for unknown indication
     Dosage: FREQ - TAKE 1 TABLET BY MOUTH EVERY DAY
     Route: 048
     Dates: start: 20220214
  9. HYDROCODONE [Concomitant]
     Active Substance: HYDROCODONE
     Indication: Product used for unknown indication
     Dosage: FREQ - TAKE 1 TABLET BY MOUTH EVERY 6 HOURS AS NEEDED FOR PAIN?5-325 TB
     Route: 048
     Dates: start: 20211223
  10. ACETAMINOPHEN [Concomitant]
     Active Substance: ACETAMINOPHEN
     Indication: Product used for unknown indication
     Dosage: 5-325 TB?FREQ - TAKE 1 TABLET BY MOUTH EVERY 6 HOURS AS NEEDED FOR PAIN
     Route: 048
     Dates: start: 20220406
  11. PREDNISONE [Concomitant]
     Active Substance: PREDNISONE
     Indication: Product used for unknown indication
     Dosage: FREQ - TAKE 1 TABLET BY MOUTH EVERY DAY.
     Route: 048
     Dates: start: 20220107
  12. TRIAMCINOLONE [Concomitant]
     Active Substance: TRIAMCINOLONE
     Indication: Product used for unknown indication
     Dosage: FREQ - APPLY TOPICALLY TO THE AFFECTED AREA TWICE DAILY AS NEEDED
     Route: 065
     Dates: start: 20220406
  13. ASPIRIN [Concomitant]
     Active Substance: ASPIRIN
     Indication: Product used for unknown indication
     Route: 065
  14. ATENOLOL [Concomitant]
     Active Substance: ATENOLOL
     Indication: Product used for unknown indication
     Route: 065
  15. ATORVASTATIN [Concomitant]
     Active Substance: ATORVASTATIN
     Indication: Product used for unknown indication
     Route: 065
  16. MODERNA COVID-19 VACCINE [Concomitant]
     Active Substance: ELASOMERAN
     Indication: COVID-19 immunisation
     Dosage: MODERNA BOOSTER 5 ML
     Route: 065
  17. MODERNA COVID-19 VACCINE [Concomitant]
     Active Substance: ELASOMERAN
     Dosage: MODERNA MDV 10 DOSE
     Route: 065
  18. DEXILANT [Concomitant]
     Active Substance: DEXLANSOPRAZOLE
     Indication: Product used for unknown indication
     Dosage: FORMERLY KAPIDEX
     Route: 065
  19. GABAPENTIN [Concomitant]
     Active Substance: GABAPENTIN
     Indication: Product used for unknown indication
     Route: 065
  20. NOVOLIN 70/30 [Concomitant]
     Active Substance: INSULIN HUMAN
     Indication: Product used for unknown indication
     Dosage: U-100 ?FLEXPEN INJ 3ML
     Route: 065
  21. OMEPRAZOLE [Concomitant]
     Active Substance: OMEPRAZOLE
     Indication: Product used for unknown indication
     Route: 065
  22. TYLENOL [Concomitant]
     Active Substance: ACETAMINOPHEN
     Indication: Product used for unknown indication
     Route: 065
  23. VITAMIN D3 [Concomitant]
     Active Substance: CHOLECALCIFEROL
     Indication: Product used for unknown indication
     Dosage: 50,000 IU (CHOLE) CAP
     Route: 065
  24. POTASSIUM CHLORIDE [Concomitant]
     Active Substance: POTASSIUM CHLORIDE
     Indication: Product used for unknown indication
     Route: 065
  25. NORCO [Concomitant]
     Active Substance: ACETAMINOPHEN\HYDROCODONE BITARTRATE
     Indication: Product used for unknown indication
     Dosage: 5/325
     Route: 065

REACTIONS (3)
  - Feeling abnormal [Unknown]
  - Thrombosis [Unknown]
  - Fatigue [Unknown]

NARRATIVE: CASE EVENT DATE: 20220901
